FAERS Safety Report 12528986 (Version 4)
Quarter: 2017Q2

REPORT INFORMATION
  Report Type: Spontaneous
  Country: BR (occurrence: BR)
  Receive Date: 20160705
  Receipt Date: 20170531
  Transmission Date: 20170830
  Serious: Yes (Other)
  Sender: FDA-Public Use
  Company Number: BR-PFIZER INC-2016315516

PATIENT
  Sex: Female

DRUGS (2)
  1. XALATAN [Suspect]
     Active Substance: LATANOPROST
     Dosage: UNK
  2. XALATAN [Suspect]
     Active Substance: LATANOPROST
     Indication: GLAUCOMA
     Dosage: 1 DROP IN EACH EYE EVERYDAY

REACTIONS (6)
  - Poor quality drug administered [Unknown]
  - Physical product label issue [Unknown]
  - Vision blurred [Unknown]
  - Visual impairment [Unknown]
  - Condition aggravated [Unknown]
  - Product container seal issue [Unknown]

NARRATIVE: CASE EVENT DATE: 2016
